FAERS Safety Report 8593704-0 (Version None)
Quarter: 2012Q3

REPORT INFORMATION
  Report Type: 
  Country: None (occurrence: None)
  Receive Date: 20120814
  Receipt Date: 20120808
  Transmission Date: 20120928
  Serious: Yes (Other)
  Sender: FDA-Public Use
  Company Number: JP-VERTEX PHARMACEUTICALS INC.-AE-2012-012032

PATIENT
  Age: 64 Year
  Sex: Female

DRUGS (5)
  1. TELAVIC (TELAPREVIR) [Suspect]
     Route: 048
     Dates: start: 20120713
  2. PEGASYS [Concomitant]
     Indication: HEPATITIS C
     Dates: start: 20120614
  3. TELAVIC (TELAPREVIR) [Suspect]
     Indication: HEPATITIS C
     Route: 048
     Dates: start: 20120614, end: 20120712
  4. RIBAVIRIN [Concomitant]
     Route: 048
     Dates: start: 20120703
  5. RIBAVIRIN [Concomitant]
     Indication: HEPATITIS C
     Route: 048
     Dates: start: 20120614, end: 20120702

REACTIONS (2)
  - ANAEMIA [None]
  - RENAL DISORDER [None]
